FAERS Safety Report 7249720-4 (Version None)
Quarter: 2011Q1

REPORT INFORMATION
  Report Type: 
  Country: None (occurrence: None)
  Receive Date: 20110128
  Receipt Date: 20110121
  Transmission Date: 20110831
  Serious: Yes (Hospitalization, Other)
  Sender: FDA-Public Use
  Company Number: US-KINGPHARMUSA00001-K201100044

PATIENT
  Sex: Male
  Weight: 12.1 kg

DRUGS (2)
  1. EPIPEN JR. [Suspect]
     Indication: FOOD ALLERGY
     Dosage: 0.15 MG, SINGLE
     Route: 030
     Dates: start: 20110106, end: 20110106
  2. EPIPEN JR. [Suspect]
     Indication: ANAPHYLACTIC REACTION

REACTIONS (3)
  - INJECTION SITE PAIN [None]
  - INJECTION SITE HAEMATOMA [None]
  - INJECTION SITE INJURY [None]
